FAERS Safety Report 10575078 (Version 3)
Quarter: 2015Q1

REPORT INFORMATION
  Report Type: Spontaneous
  Country: US (occurrence: US)
  Receive Date: 20141111
  Receipt Date: 20150203
  Transmission Date: 20150720
  Serious: No
  Sender: FDA-Public Use
  Company Number: US-LEO PHARMA-230561

PATIENT
  Age: 67 Year
  Sex: Female

DRUGS (1)
  1. PICATO [Suspect]
     Active Substance: INGENOL MEBUTATE
     Indication: JUVENILE MELANOMA BENIGN
     Dates: start: 20141023, end: 20141024

REACTIONS (8)
  - Incorrect drug administration duration [Unknown]
  - Accidental exposure to product [Unknown]
  - Oropharyngeal pain [Recovered/Resolved]
  - Lip swelling [Recovered/Resolved]
  - Hypoaesthesia oral [Recovered/Resolved]
  - Drug ineffective [Unknown]
  - Pharyngeal hypoaesthesia [Recovered/Resolved]
  - Product use issue [Unknown]
